FAERS Safety Report 6617452-9 (Version None)
Quarter: 2010Q1

REPORT INFORMATION
  Report Type: 
  Country: None (occurrence: None)
  Receive Date: 20100308
  Receipt Date: 20100115
  Transmission Date: 20100710
  Serious: Yes (Other)
  Sender: FDA-Public Use
  Company Number: FR-JNJFOC-20091104941

PATIENT
  Age: 50 Year
  Sex: Female

DRUGS (1)
  1. TAVANIC [Suspect]
     Indication: SINUSITIS
     Route: 048
     Dates: start: 20090925, end: 20091004

REACTIONS (3)
  - PHOTOSENSITIVITY REACTION [None]
  - RADIATION SKIN INJURY [None]
  - SKIN HAEMORRHAGE [None]
